FAERS Safety Report 16565380 (Version 1)
Quarter: 2019Q3

REPORT INFORMATION
  Report Type: Spontaneous
  Country: US (occurrence: US)
  Receive Date: 20190711
  Receipt Date: 20190711
  Transmission Date: 20191004
  Serious: Yes (Other)
  Sender: FDA-Public Use
  Company Number: None

PATIENT
  Sex: Female
  Weight: 67.5 kg

DRUGS (7)
  1. FEMARA [Concomitant]
     Active Substance: LETROZOLE
  2. ASPIRIN. [Concomitant]
     Active Substance: ASPIRIN
  3. VITAMIN C [Concomitant]
     Active Substance: ASCORBIC ACID
  4. ZOCOR [Concomitant]
     Active Substance: SIMVASTATIN
  5. ZOFRAN [Concomitant]
     Active Substance: ONDANSETRON HYDROCHLORIDE
  6. VOTRIENT [Suspect]
     Active Substance: PAZOPANIB HYDROCHLORIDE
     Indication: UTERINE CANCER
     Route: 048
     Dates: start: 20190603
  7. HYZAAR [Concomitant]
     Active Substance: HYDROCHLOROTHIAZIDE\LOSARTAN POTASSIUM

REACTIONS (1)
  - Hospice care [None]
